FAERS Safety Report 10681931 (Version 1)
Quarter: 2014Q4

REPORT INFORMATION
  Report Type: Spontaneous
  Country: US (occurrence: None)
  Receive Date: 20141229
  Receipt Date: 20141229
  Transmission Date: 20150529
  Serious: Yes (Disabling, Other)
  Sender: FDA-Public Use
  Company Number: None

PATIENT
  Age: 72 Year
  Sex: Male
  Weight: 90.72 kg

DRUGS (1)
  1. LEVAQUIN [Suspect]
     Active Substance: LEVOFLOXACIN
     Indication: LUNG INFECTION
     Route: 042
     Dates: start: 20141030, end: 20141105

REACTIONS (8)
  - Depression [None]
  - Musculoskeletal stiffness [None]
  - Gait disturbance [None]
  - Fall [None]
  - Tendonitis [None]
  - Anxiety [None]
  - Pain [None]
  - Neuropathy peripheral [None]

NARRATIVE: CASE EVENT DATE: 20141103
